FAERS Safety Report 15827343 (Version 2)
Quarter: 2021Q2

REPORT INFORMATION
  Report Type: Spontaneous
  Country: US (occurrence: US)
  Receive Date: 20190115
  Receipt Date: 20210510
  Transmission Date: 20210716
  Serious: No
  Sender: FDA-Public Use
  Company Number: US-SA-2019SA007528

PATIENT
  Age: 20 Year
  Sex: Female

DRUGS (3)
  1. DUPIXENT [Suspect]
     Active Substance: DUPILUMAB
     Indication: ASTHMA
     Dosage: 600 MG, 1X
     Route: 058
     Dates: start: 20181221, end: 20181221
  2. DUPIXENT [Suspect]
     Active Substance: DUPILUMAB
     Dosage: UNK
     Route: 058
     Dates: start: 20190104, end: 20190104
  3. DUPIXENT [Suspect]
     Active Substance: DUPILUMAB
     Indication: DERMATITIS ATOPIC
     Dosage: UNK
     Route: 058
     Dates: start: 2018, end: 2018

REACTIONS (3)
  - Arthralgia [Unknown]
  - Joint stiffness [Unknown]
  - Conjunctivitis [Unknown]
